FAERS Safety Report 5378103-7 (Version None)
Quarter: 2007Q3

REPORT INFORMATION
  Report Type: 
  Country: None (occurrence: None)
  Receive Date: 20070705
  Receipt Date: 20070626
  Transmission Date: 20080115
  Serious: Yes (Hospitalization)
  Sender: FDA-Public Use
  Company Number: PHEH2007US06553

PATIENT
  Age: 86 Year
  Sex: Female

DRUGS (8)
  1. ZELNORM [Suspect]
     Indication: CONSTIPATION
     Dosage: 6 MG, UNK
     Dates: start: 20040101
  2. PREVACID [Concomitant]
  3. GLYBURIDE [Concomitant]
  4. BYETTA [Concomitant]
  5. PRAVACHOL [Concomitant]
  6. COREG [Concomitant]
  7. LASIX [Concomitant]
  8. ASPIRIN [Concomitant]
     Dosage: 81 MG, UNK

REACTIONS (2)
  - DYSPNOEA [None]
  - MYOCARDIAL INFARCTION [None]
